FAERS Safety Report 7804293-X (Version None)
Quarter: 2011Q4

REPORT INFORMATION
  Report Type: 
  Country: None (occurrence: None)
  Receive Date: 20111010
  Receipt Date: 20110621
  Transmission Date: 20120403
  Serious: Yes (Hospitalization)
  Sender: FDA-Public Use
  Company Number: US-BAYER-2011-031397

PATIENT
  Age: 24 Year
  Sex: Female
  Weight: 65.76 kg

DRUGS (6)
  1. PROCHLORPERAZINE [Concomitant]
  2. OXYCODONE HCL AND ACETAMINOPHEN [Concomitant]
  3. YASMIN [Suspect]
     Dosage: UNK
     Dates: start: 20060701, end: 20080901
  4. DROSPIRENONE AND ETHINYL ESTRADIOL [Suspect]
     Dosage: 1 DF, QD
     Dates: start: 20080901, end: 20100301
  5. YASMIN [Suspect]
     Indication: CONTRACEPTION
     Dosage: UNK
     Dates: start: 20060701, end: 20090901
  6. DROSPIRENONE AND ETHINYL ESTRADIOL [Suspect]
     Indication: CONTRACEPTION
     Dosage: UNK
     Dates: start: 20090901, end: 20100501

REACTIONS (2)
  - ABDOMINAL PAIN [None]
  - CHOLECYSTITIS CHRONIC [None]
